FAERS Safety Report 6295005-2 (Version None)
Quarter: 2009Q3

REPORT INFORMATION
  Report Type: 
  Country: None (occurrence: None)
  Receive Date: 20090803
  Receipt Date: 20090729
  Transmission Date: 20100115
  Serious: No
  Sender: FDA-Public Use
  Company Number: US-B.I. PHARMACEUTICALS,INC./RIDGEFIELD-2009-BP-08908BP

PATIENT
  Sex: Female

DRUGS (9)
  1. SPIRIVA [Suspect]
     Indication: DYSPNOEA
     Dosage: 18 MCG
     Route: 055
     Dates: start: 20090501, end: 20090729
  2. HYDROCHLOROTHIAZIDE [Concomitant]
     Indication: HYPERTENSION
  3. METOPROLOL TARTRATE [Concomitant]
     Indication: HYPERTENSION
  4. LISINOPRIL AND HYDROCHLOROTHIAZIDE [Concomitant]
     Indication: HYPERTENSION
  5. S STATIN [Concomitant]
     Indication: BLOOD CHOLESTEROL INCREASED
  6. VITAMIN B-12 [Concomitant]
  7. VITAMIN D [Concomitant]
  8. VITAMIN A [Concomitant]
     Indication: EYE DISORDER
  9. ASPIRIN [Concomitant]
     Indication: PROPHYLAXIS

REACTIONS (3)
  - OEDEMA PERIPHERAL [None]
  - ORAL PAIN [None]
  - URINARY TRACT INFECTION [None]
